FAERS Safety Report 7070519-6 (Version None)
Quarter: 2010Q4

REPORT INFORMATION
  Report Type: 
  Country: None (occurrence: None)
  Receive Date: 20101029
  Receipt Date: 20101021
  Transmission Date: 20110411
  Serious: Yes (Other)
  Sender: FDA-Public Use
  Company Number: JP-JNJFOC-20100904160

PATIENT
  Age: 60 Year
  Sex: Male

DRUGS (2)
  1. RISPERDAL [Suspect]
     Indication: SOMNAMBULISM
     Route: 048
  2. RISPERDAL [Suspect]
     Indication: DELIRIUM
     Route: 048

REACTIONS (2)
  - HALLUCINATION [None]
  - OFF LABEL USE [None]
